FAERS Safety Report 24808087 (Version 1)
Quarter: 2025Q1

REPORT INFORMATION
  Report Type: Spontaneous
  Country: US (occurrence: US)
  Receive Date: 20250106
  Receipt Date: 20250106
  Transmission Date: 20250409
  Serious: Yes (Hospitalization)
  Sender: STRIDES
  Company Number: US-STRIDES ARCOLAB LIMITED-2025SP000054

PATIENT
  Age: 61 Year
  Sex: Female

DRUGS (2)
  1. OMEPRAZOLE [Suspect]
     Active Substance: OMEPRAZOLE
     Indication: Cytomegalovirus oesophagitis
     Route: 065
  2. VALGANCICLOVIR HYDROCHLORIDE [Suspect]
     Active Substance: VALGANCICLOVIR HYDROCHLORIDE
     Indication: Cytomegalovirus oesophagitis
     Route: 065

REACTIONS (3)
  - Disease progression [Recovered/Resolved]
  - Drug ineffective [Unknown]
  - Off label use [Unknown]
